FAERS Safety Report 8592091-1 (Version None)
Quarter: 2012Q3

REPORT INFORMATION
  Report Type: 
  Country: None (occurrence: None)
  Receive Date: 20120814
  Receipt Date: 20120809
  Transmission Date: 20120928
  Serious: Yes (Hospitalization, Other)
  Sender: FDA-Public Use
  Company Number: PHHY2012JP027370

PATIENT
  Sex: Female
  Weight: 47 kg

DRUGS (5)
  1. ZOMETA [Suspect]
     Dosage: 4 MG PER ADMINISTRATION, UNK
     Route: 023
     Dates: end: 20111001
  2. HERCEPTIN [Concomitant]
     Dosage: UNK UKN, UNK
     Dates: start: 20081020, end: 20101109
  3. ANASTROZOLE [Concomitant]
     Dosage: UNK UKN, UNK
     Route: 048
     Dates: start: 20081201
  4. FEMARA [Suspect]
     Indication: BREAST CANCER METASTATIC
     Dosage: 2.5 MG, QD
     Route: 048
  5. FEMARA [Suspect]
     Dosage: 2.5 MG, DAILY
     Route: 048
     Dates: start: 20111229

REACTIONS (27)
  - ENDOPHTHALMITIS [None]
  - STREPTOCOCCAL INFECTION [None]
  - C-REACTIVE PROTEIN INCREASED [None]
  - VISUAL ACUITY REDUCED [None]
  - MUSCULOSKELETAL PAIN [None]
  - SWELLING [None]
  - BLOOD PRESSURE FLUCTUATION [None]
  - MALAISE [None]
  - ABDOMINAL PAIN [None]
  - DYSURIA [None]
  - INFLAMMATION [None]
  - TENDERNESS [None]
  - ERYTHEMA [None]
  - URINARY RETENTION [None]
  - MITRAL VALVE INCOMPETENCE [None]
  - PYREXIA [None]
  - IMMUNE SYSTEM DISORDER [None]
  - NECK PAIN [None]
  - TRICUSPID VALVE INCOMPETENCE [None]
  - SEPSIS [None]
  - OEDEMA [None]
  - BLOOD PRESSURE DECREASED [None]
  - JAUNDICE [None]
  - MYALGIA [None]
  - CARDIOTHORACIC RATIO INCREASED [None]
  - ENDOCARDITIS [None]
  - VISION BLURRED [None]
